FAERS Safety Report 6345285-X (Version None)
Quarter: 2009Q3

REPORT INFORMATION
  Report Type: 
  Country: None (occurrence: None)
  Receive Date: 20090821
  Receipt Date: 20090717
  Transmission Date: 20100115
  Serious: No
  Sender: FDA-Public Use
  Company Number: 8048345

PATIENT
  Age: 21 Year
  Sex: Female
  Weight: 61.25 kg

DRUGS (2)
  1. CIMZIA [Suspect]
     Indication: CROHN'S DISEASE
     Dosage: 400 MG SC
     Route: 058
     Dates: start: 20081023
  2. CELEBREX [Concomitant]

REACTIONS (7)
  - ABDOMINAL PAIN [None]
  - APHTHOUS STOMATITIS [None]
  - DIARRHOEA [None]
  - DYSPEPSIA [None]
  - FATIGUE [None]
  - JOINT SWELLING [None]
  - PAIN [None]
